FAERS Safety Report 7073680-2 (Version None)
Quarter: 2010Q4

REPORT INFORMATION
  Report Type: 
  Country: None (occurrence: None)
  Receive Date: 20101029
  Receipt Date: 20100729
  Transmission Date: 20110411
  Serious: No
  Sender: FDA-Public Use
  Company Number: A0872964A

PATIENT
  Sex: Male

DRUGS (18)
  1. ADVAIR DISKUS 100/50 [Suspect]
     Indication: EMPHYSEMA
     Route: 055
     Dates: start: 20070101
  2. DUONEB [Concomitant]
  3. ALDACTONE [Concomitant]
  4. FENOFIBRATE [Concomitant]
  5. IMDUR [Concomitant]
  6. INDERAL [Concomitant]
  7. LANOXIN [Concomitant]
  8. LASIX [Concomitant]
  9. LORTAB [Concomitant]
  10. NEXIUM [Concomitant]
  11. NITROGLYCERIN [Concomitant]
  12. PERSANTINE [Concomitant]
  13. PHENERGAN [Concomitant]
  14. POTASSIUM CHLORIDE [Concomitant]
  15. PRINIVIL [Concomitant]
  16. VALIUM [Concomitant]
  17. ULTRAM [Concomitant]
  18. TAGAMET [Concomitant]

REACTIONS (1)
  - DRUG INEFFECTIVE [None]
